FAERS Safety Report 12214574 (Version 3)
Quarter: 2016Q2

REPORT INFORMATION
  Report Type: Report from Study
  Country: DE (occurrence: DE)
  Receive Date: 20160328
  Receipt Date: 20160412
  Transmission Date: 20160815
  Serious: Yes (Hospitalization)
  Sender: FDA-Public Use
  Company Number: DE-BIOGEN-2016BI00208820

PATIENT
  Age: 32 Year
  Sex: Female

DRUGS (6)
  1. PANTOZOL [Concomitant]
     Active Substance: PANTOPRAZOLE SODIUM
     Indication: PROPHYLAXIS
     Dates: start: 20160208
  2. RESTEX [Concomitant]
     Active Substance: BENSERAZIDE
     Indication: RESTLESS LEGS SYNDROME
     Dosage: 100/25
     Dates: start: 20141208
  3. TIZANIDIN [Concomitant]
     Indication: MUSCLE SPASTICITY
     Dates: start: 20150629
  4. TOLPERISON [Concomitant]
     Indication: NEURALGIA
     Dates: start: 20151116
  5. VIGIL [Concomitant]
     Active Substance: MODAFINIL
     Indication: FATIGUE
     Dates: start: 20150727
  6. TYSABRI [Suspect]
     Active Substance: NATALIZUMAB
     Indication: RELAPSING-REMITTING MULTIPLE SCLEROSIS
     Dosage: 51 INFUSIONS
     Route: 042
     Dates: start: 20120320, end: 20160208

REACTIONS (1)
  - Progressive multifocal leukoencephalopathy [Not Recovered/Not Resolved]

NARRATIVE: CASE EVENT DATE: 20160307
